FAERS Safety Report 23151442 (Version 4)
Quarter: 2024Q1

REPORT INFORMATION
  Report Type: Report from Study
  Country: PT (occurrence: PT)
  Receive Date: 20231107
  Receipt Date: 20240123
  Transmission Date: 20240409
  Serious: Yes (Death)
  Sender: FDA-Public Use
  Company Number: PT-PFIZER INC-PV202200027804

PATIENT
  Age: 76 Year
  Sex: Male
  Weight: 77 kg

DRUGS (3)
  1. AVIBACTAM SODIUM\CEFTAZIDIME [Suspect]
     Active Substance: AVIBACTAM SODIUM\CEFTAZIDIME
     Indication: Septic shock
     Dosage: TIME INTERVAL: 0.33333333 DAYS: 1 DF, 3X/DAY (0.5G + 2G  8/8H))?DAILY DOSE: 7.5 G, TOTAL: 105.0 G
     Route: 065
     Dates: start: 20220610, end: 20220623
  2. LINEZOLID [Concomitant]
     Active Substance: LINEZOLID
     Indication: Septic shock
     Dosage: DOSE DESC: UNK
     Route: 042
     Dates: start: 20220603, end: 20220617
  3. FLUCONAZOLE [Concomitant]
     Active Substance: FLUCONAZOLE
     Indication: Septic shock
     Dosage: DOSE DESC: UNK
     Route: 042
     Dates: start: 20220610, end: 20220617

REACTIONS (1)
  - Septic shock [Fatal]
